FAERS Safety Report 9201612 (Version 1)
Quarter: 2013Q2

REPORT INFORMATION
  Report Type: Spontaneous
  Country: US (occurrence: US)
  Receive Date: 20130401
  Receipt Date: 20130401
  Transmission Date: 20140414
  Serious: Yes (Hospitalization)
  Sender: FDA-Public Use
  Company Number: US-BAYER-2013-040786

PATIENT
  Age: 59 Year
  Sex: Male

DRUGS (7)
  1. XARELTO [Suspect]
     Indication: CEREBROVASCULAR ACCIDENT PROPHYLAXIS
     Dosage: 15 MG, QD
     Route: 048
     Dates: start: 201301, end: 201303
  2. XARELTO [Suspect]
     Indication: ATRIAL FIBRILLATION
  3. METFORMIN [Concomitant]
     Indication: DIABETES MELLITUS
     Route: 065
  4. LIPITOR [Concomitant]
     Route: 065
  5. COREG [Concomitant]
     Route: 065
  6. ACETYLSALICYLIC ACID [Suspect]
     Indication: PRODUCT USED FOR UNKNOWN INDICATION
     Route: 065
  7. AMIODARONE [Concomitant]
     Route: 065

REACTIONS (2)
  - Gastrointestinal haemorrhage [Recovered/Resolved]
  - Product quality issue [None]
